FAERS Safety Report 5092821-X (Version None)
Quarter: 2006Q3

REPORT INFORMATION
  Report Type: 
  Country: None (occurrence: None)
  Receive Date: 20060828
  Receipt Date: 20060628
  Transmission Date: 20061208
  Serious: Yes (Death, Hospitalization, Other)
  Sender: FDA-Public Use
  Company Number: 530#5#2006-00031

PATIENT
  Age: 77 Year
  Sex: Female

DRUGS (18)
  1. ALPROSTADIL [Suspect]
     Indication: PERIPHERAL ISCHAEMIA
     Dosage: 2 X 40 MCG PER DAY INTRAVENOUS DRIP
     Route: 041
     Dates: start: 20060516, end: 20060612
  2. KETOPROFEN 100MG, AMPOULES (KETOPROFEN) [Concomitant]
  3. PETHIDINE HYDROCHLORIDE 50MG, AMPOULES (PETHIDINE HYDROCHLORIDE) [Concomitant]
  4. PETHIDINE HYDROCHLORIDE 100MG, AMPOULES (PETHIDINE HYDROCHLORIDE) [Concomitant]
  5. FUROSEMIDE 40MG, TABLETS (FUROSEMIDE) [Concomitant]
  6. AMLODIPINE 5MG, TABLETS (AMLODIPINE) [Concomitant]
  7. TICLOPIDINE 250MG, TABLETS (TICLOPIDINE) [Concomitant]
  8. POTASSIUM CHLORIDE 750MG, TABLETS (POTASSIUM CHLORIDE) [Concomitant]
  9. RANITIDINE HYDROCHLORIDE 150MG, TABLETS (RANITIDINE HYDROCHLORIDE) [Concomitant]
  10. HEPARIN SODIUM 24000IU, AMPOULES (HEPARIN SODIUM) [Concomitant]
  11. RANITIDINE 100MG, AMPOULES (RANITIDINE) [Concomitant]
  12. SODIUM CHLORIDE 0.9%, SOLUTION (SODIUM CHLORIDE) [Concomitant]
  13. ENOXAPARIN SODIUM 40MG, AMPOULES (HEPARIN-FRACTION, SODIUM SALT) [Concomitant]
  14. FUROSEMIDE 40MG, AMPOULES (FUROSEMIDE) [Concomitant]
  15. MIDAZOLAM 50MG, AMPOULES (MIDAZOLAM) [Concomitant]
  16. POTASSIUM CHLORIDE 3G, AMPOULES (POTASSIUM CHLORIDE) [Concomitant]
  17. FUROSEMIDE 20MG, AMPOULES (FUROSEMIDE) [Concomitant]
  18. METOCLOPRAMIDE 10MG, AMPOULES (METOCLOPRAMIDE) [Concomitant]

REACTIONS (13)
  - ANAESTHETIC COMPLICATION [None]
  - BRONCHOPNEUMONIA [None]
  - CHEST PAIN [None]
  - DUODENAL ULCER [None]
  - GASTRIC ULCER HAEMORRHAGE [None]
  - GENERAL PHYSICAL HEALTH DETERIORATION [None]
  - ISCHAEMIA [None]
  - LEG AMPUTATION [None]
  - PERIPHERAL ARTERIAL OCCLUSIVE DISEASE [None]
  - RESPIRATORY FAILURE [None]
  - SKIN ULCER [None]
  - SOFT TISSUE NECROSIS [None]
  - VOMITING [None]
